FAERS Safety Report 4517781-9 (Version None)
Quarter: 2004Q4

REPORT INFORMATION
  Report Type: 
  Country: None (occurrence: None)
  Receive Date: 20041203
  Receipt Date: 20041126
  Transmission Date: 20050328
  Serious: Yes (Hospitalization)
  Sender: FDA-Public Use
  Company Number: FR-ROCHE-387347

PATIENT
  Age: 30 Month
  Sex: Male
  Weight: 12 kg

DRUGS (3)
  1. CELLCEPT [Suspect]
     Indication: PROPHYLAXIS AGAINST TRANSPLANT REJECTION
     Route: 048
     Dates: start: 20040519
  2. CELLCEPT [Suspect]
     Route: 048
     Dates: end: 20041001
  3. PROGRAF [Concomitant]

REACTIONS (2)
  - APLASTIC ANAEMIA [None]
  - HYPOALBUMINAEMIA [None]
